FAERS Safety Report 9871681 (Version 1)
Quarter: 2014Q1

REPORT INFORMATION
  Report Type: Spontaneous
  Country: GB (occurrence: GB)
  Receive Date: 20140205
  Receipt Date: 20140205
  Transmission Date: 20141002
  Serious: Yes (Hospitalization, Other)
  Sender: FDA-Public Use
  Company Number: GB-ACTAVIS-2014-01412

PATIENT
  Age: 67 Year
  Sex: Female
  Weight: 103 kg

DRUGS (9)
  1. QUETIAPINE (UNKNOWN) [Suspect]
     Indication: SCHIZOPHRENIA
     Dosage: 150 MG, BID
     Route: 048
     Dates: start: 20140102, end: 20140107
  2. SERTRALINE [Concomitant]
     Indication: DEPRESSION
     Dosage: 200 MG, DAILY
     Route: 048
     Dates: start: 20131221
  3. DIAZEPAM [Concomitant]
     Indication: ANXIETY
     Dosage: 2 MG, DAILY
     Route: 048
     Dates: start: 20130404
  4. PRAVASTATIN [Concomitant]
     Indication: HYPERCHOLESTEROLAEMIA
     Dosage: 10 MG, DAILY
     Route: 048
     Dates: start: 20130618
  5. CO-CODAMOL [Concomitant]
     Indication: PAIN
     Dosage: 1 DF, QID - 30/500
     Route: 048
     Dates: start: 20130708
  6. IPRATROPIUM BROMIDE [Concomitant]
     Indication: CHRONIC OBSTRUCTIVE PULMONARY DISEASE
     Dosage: 250 ?G, QID - NEBULISED
     Route: 055
     Dates: start: 20130708
  7. ASPIRIN [Concomitant]
     Indication: PRODUCT USED FOR UNKNOWN INDICATION
     Dosage: 150 MG, DAILY
     Route: 048
     Dates: start: 20130709
  8. METFORMIN [Concomitant]
     Indication: DIABETES MELLITUS
     Dosage: 500 MG, DAILY
     Route: 048
     Dates: start: 20130709
  9. RAMIPRIL [Concomitant]
     Indication: HYPERTENSION
     Dosage: 5 MG, DAILY
     Route: 048
     Dates: start: 20130907

REACTIONS (1)
  - Grand mal convulsion [Recovered/Resolved]
